FAERS Safety Report 7341447-3 (Version None)
Quarter: 2011Q1

REPORT INFORMATION
  Report Type: 
  Country: None (occurrence: None)
  Receive Date: 20110309
  Receipt Date: 20100119
  Transmission Date: 20110831
  Serious: No
  Sender: FDA-Public Use
  Company Number: US-BAYER-201011853NA

PATIENT
  Sex: Female
  Weight: 68.182 kg

DRUGS (1)
  1. MIRENA [Suspect]
     Indication: CONTRACEPTION
     Dosage: 20 ?G/D, CONT
     Route: 015
     Dates: start: 20090201, end: 20100119

REACTIONS (2)
  - UTERINE CERVICAL PAIN [None]
  - GENITAL ERYTHEMA [None]
